FAERS Safety Report 14037856 (Version 5)
Quarter: 2017Q4

REPORT INFORMATION
  Report Type: Report from Study
  Country: CN (occurrence: CN)
  Receive Date: 20171004
  Receipt Date: 20171205
  Transmission Date: 20180321
  Serious: Yes (Hospitalization)
  Sender: FDA-Public Use
  Company Number: CN-ASTRAZENECA-2017SE99475

PATIENT
  Age: 917 Month
  Sex: Female

DRUGS (3)
  1. TAGRISSO [Suspect]
     Active Substance: OSIMERTINIB
     Indication: NON-SMALL CELL LUNG CANCER
     Route: 048
     Dates: start: 20170904, end: 20170924
  2. TAGRISSO [Suspect]
     Active Substance: OSIMERTINIB
     Indication: NON-SMALL CELL LUNG CANCER
     Route: 048
     Dates: start: 20170407, end: 20170902
  3. LEUCOGEN [Concomitant]
     Active Substance: LEUCOGEN
     Indication: WHITE BLOOD CELL COUNT DECREASED
     Route: 048
     Dates: start: 20170630

REACTIONS (1)
  - Erythema multiforme [Recovered/Resolved with Sequelae]

NARRATIVE: CASE EVENT DATE: 20170715
